FAERS Safety Report 9273779 (Version 1)
Quarter: 2013Q2

REPORT INFORMATION
  Report Type: Spontaneous
  Country: US (occurrence: US)
  Receive Date: 20130506
  Receipt Date: 20130506
  Transmission Date: 20140414
  Serious: No
  Sender: FDA-Public Use
  Company Number: US-AMGEN-USASP2013026591

PATIENT
  Age: 49 Year
  Sex: Female
  Weight: 58.05 kg

DRUGS (7)
  1. ENBREL [Suspect]
     Indication: RHEUMATOID ARTHRITIS
     Dosage: 50 MG, QWK
     Route: 058
     Dates: start: 20130308, end: 20130402
  2. METHOTREXATE [Concomitant]
     Indication: RHEUMATOID ARTHRITIS
     Dosage: 0.8 CC, QWK
     Route: 058
     Dates: start: 201204
  3. PREDNISONE [Concomitant]
     Indication: RHEUMATOID ARTHRITIS
     Dosage: 5-10 MG, QD, PRN
     Route: 048
  4. HUMIRA [Concomitant]
     Indication: RHEUMATOID ARTHRITIS
     Dosage: 40 MG, QWK
     Route: 058
     Dates: start: 201108, end: 201302
  5. REMICADE [Concomitant]
     Dosage: UNK
     Dates: start: 200807, end: 201004
  6. IMURAN                             /00001501/ [Concomitant]
     Dosage: UNK
     Dates: start: 201009, end: 201011
  7. CIMZIA [Concomitant]
     Dosage: UNK
     Dates: start: 201006, end: 201108

REACTIONS (8)
  - Arthralgia [Not Recovered/Not Resolved]
  - Joint swelling [Not Recovered/Not Resolved]
  - Local swelling [Not Recovered/Not Resolved]
  - Skin exfoliation [Not Recovered/Not Resolved]
  - Erythema [Not Recovered/Not Resolved]
  - Skin ulcer [Recovered/Resolved]
  - Pruritus [Recovered/Resolved]
  - Rash [Recovered/Resolved]
